FAERS Safety Report 8133911-4 (Version None)
Quarter: 2012Q1

REPORT INFORMATION
  Report Type: 
  Country: None (occurrence: None)
  Receive Date: 20120213
  Receipt Date: 20120203
  Transmission Date: 20120608
  Serious: Yes (Other)
  Sender: FDA-Public Use
  Company Number: US-ASTRAZENECA-2011SE58916

PATIENT
  Age: 74 Year
  Sex: Male

DRUGS (4)
  1. COUMADIN [Concomitant]
  2. DIGOXIN [Concomitant]
  3. CRESTOR [Suspect]
     Route: 048
  4. XIFAFAN [Concomitant]

REACTIONS (8)
  - ERUCTATION [None]
  - GASTRITIS [None]
  - HELICOBACTER INFECTION [None]
  - IMPAIRED GASTRIC EMPTYING [None]
  - MALAISE [None]
  - SKIN CANCER [None]
  - GASTRIC DISORDER [None]
  - DIABETES MELLITUS [None]
